FAERS Safety Report 11307870 (Version 2)
Quarter: 2015Q4

REPORT INFORMATION
  Report Type: Spontaneous
  Country: PH (occurrence: PH)
  Receive Date: 20150724
  Receipt Date: 20151009
  Transmission Date: 20160304
  Serious: Yes (Hospitalization, Disabling)
  Sender: FDA-Public Use
  Company Number: PH-009507513-1507PHL000279

PATIENT
  Age: 53 Year
  Sex: Female

DRUGS (5)
  1. MARVELON [Suspect]
     Active Substance: DESOGESTREL\ETHINYL ESTRADIOL
     Indication: HAEMORRHAGE
     Dosage: UNK, QD
     Route: 048
     Dates: start: 20150629, end: 20150701
  2. ARCOXIA [Suspect]
     Active Substance: ETORICOXIB
     Indication: PROCEDURAL PAIN
     Dosage: 120 MG, QD
     Route: 048
     Dates: start: 20150709, end: 20150712
  3. HEMOSTAN [Concomitant]
     Indication: HAEMORRHAGE
     Dosage: 500 MG, QD
     Dates: start: 20150629, end: 20150701
  4. BETADINE [Concomitant]
     Active Substance: POVIDONE-IODINE
     Indication: INFECTION PROPHYLAXIS
     Dosage: UNK
     Dates: start: 20150712, end: 20150717
  5. HEMOSTAN [Concomitant]
     Indication: POST PROCEDURAL HAEMORRHAGE
     Dosage: 500 MG, 6 TIMES A DAY
     Dates: start: 20150709, end: 20150716

REACTIONS (10)
  - Uterine leiomyoma [Unknown]
  - Decreased appetite [Recovered/Resolved]
  - Drug prescribing error [Unknown]
  - Pruritus [Recovered/Resolved]
  - Nausea [Recovered/Resolved]
  - Ovarian cyst [Recovered/Resolved]
  - Abdominal pain [Recovered/Resolved]
  - Uterine haemorrhage [Recovered/Resolved]
  - Haematoma [Recovered/Resolved]
  - Abdominal distension [Recovered/Resolved]

NARRATIVE: CASE EVENT DATE: 20150629
